FAERS Safety Report 26134699 (Version 1)
Quarter: 2025Q4

REPORT INFORMATION
  Report Type: Spontaneous
  Country: CN (occurrence: CN)
  Receive Date: 20251209
  Receipt Date: 20251209
  Transmission Date: 20260118
  Serious: Yes (Hospitalization)
  Sender: BEIGENE
  Company Number: CN-BEONEMEDICINES-BGN-2025-021527

PATIENT
  Age: 67 Year
  Sex: Male
  Weight: 50 kg

DRUGS (20)
  1. TISLELIZUMAB [Suspect]
     Active Substance: TISLELIZUMAB
     Indication: Oesophageal carcinoma
     Dosage: 200 MILLIGRAM, Q3WK D2
     Dates: start: 20250418
  2. TISLELIZUMAB [Suspect]
     Active Substance: TISLELIZUMAB
     Indication: Metastases to liver
     Dosage: 200 MILLIGRAM, Q3WK D2
     Route: 041
     Dates: start: 20250418
  3. TISLELIZUMAB [Suspect]
     Active Substance: TISLELIZUMAB
     Dosage: 200 MILLIGRAM, Q3WK D2
     Route: 041
     Dates: start: 20250418
  4. TISLELIZUMAB [Suspect]
     Active Substance: TISLELIZUMAB
     Dosage: 200 MILLIGRAM, Q3WK D2
     Dates: start: 20250418
  5. NEDAPLATIN [Suspect]
     Active Substance: NEDAPLATIN
     Indication: Oesophageal carcinoma
     Dosage: 126 MILLIGRAM, Q3WK D1
     Dates: start: 20250418
  6. NEDAPLATIN [Suspect]
     Active Substance: NEDAPLATIN
     Indication: Metastases to liver
     Dosage: 126 MILLIGRAM, Q3WK D1
     Route: 041
     Dates: start: 20250418
  7. NEDAPLATIN [Suspect]
     Active Substance: NEDAPLATIN
     Dosage: 126 MILLIGRAM, Q3WK D1
     Route: 041
     Dates: start: 20250418
  8. NEDAPLATIN [Suspect]
     Active Substance: NEDAPLATIN
     Dosage: 126 MILLIGRAM, Q3WK D1
     Dates: start: 20250418
  9. PACLITAXEL [Suspect]
     Active Substance: PACLITAXEL
     Indication: Oesophageal carcinoma
     Dosage: 400 MILLIGRAM, Q3WK D1
     Dates: start: 20250418
  10. PACLITAXEL [Suspect]
     Active Substance: PACLITAXEL
     Indication: Metastases to liver
     Dosage: 400 MILLIGRAM, Q3WK D1
     Route: 041
     Dates: start: 20250418
  11. PACLITAXEL [Suspect]
     Active Substance: PACLITAXEL
     Dosage: 400 MILLIGRAM, Q3WK D1
     Route: 041
     Dates: start: 20250418
  12. PACLITAXEL [Suspect]
     Active Substance: PACLITAXEL
     Dosage: 400 MILLIGRAM, Q3WK D1
     Dates: start: 20250418
  13. SODIUM CHLORIDE [Concomitant]
     Active Substance: SODIUM CHLORIDE
     Indication: Vehicle solution use
     Route: 041
     Dates: start: 20250418, end: 20250418
  14. SODIUM CHLORIDE [Concomitant]
     Active Substance: SODIUM CHLORIDE
     Dates: start: 20250418, end: 20250418
  15. SODIUM CHLORIDE [Concomitant]
     Active Substance: SODIUM CHLORIDE
     Dates: start: 20250418, end: 20250418
  16. SODIUM CHLORIDE [Concomitant]
     Active Substance: SODIUM CHLORIDE
     Route: 041
     Dates: start: 20250418, end: 20250418
  17. SODIUM CHLORIDE [Concomitant]
     Active Substance: SODIUM CHLORIDE
     Dosage: 500 MILLILITER, QD
     Route: 041
     Dates: start: 20250418, end: 20250418
  18. SODIUM CHLORIDE [Concomitant]
     Active Substance: SODIUM CHLORIDE
     Dosage: 500 MILLILITER, QD
     Dates: start: 20250418, end: 20250418
  19. SODIUM CHLORIDE [Concomitant]
     Active Substance: SODIUM CHLORIDE
     Dosage: 500 MILLILITER, QD
     Dates: start: 20250418, end: 20250418
  20. SODIUM CHLORIDE [Concomitant]
     Active Substance: SODIUM CHLORIDE
     Dosage: 500 MILLILITER, QD
     Route: 041
     Dates: start: 20250418, end: 20250418

REACTIONS (1)
  - Myelosuppression [Recovering/Resolving]

NARRATIVE: CASE EVENT DATE: 20250430
